FAERS Safety Report 18745198 (Version 5)
Quarter: 2022Q1

REPORT INFORMATION
  Report Type: Spontaneous
  Country: US (occurrence: US)
  Receive Date: 20210115
  Receipt Date: 20220121
  Transmission Date: 20220423
  Serious: No
  Sender: FDA-Public Use
  Company Number: US-PFIZER INC-2019055826

PATIENT
  Age: 68 Year
  Sex: Male
  Weight: 122.47 kg

DRUGS (3)
  1. GENOTROPIN [Suspect]
     Active Substance: SOMATROPIN
     Indication: Pituitary apoplexy
     Dosage: 0.2 MG
     Dates: start: 2018
  2. GENOTROPIN [Suspect]
     Active Substance: SOMATROPIN
     Indication: Hypopituitarism
     Dosage: 0.2 MG, DAILY
     Dates: start: 20190129
  3. GENOTROPIN [Suspect]
     Active Substance: SOMATROPIN
     Dosage: UNK

REACTIONS (5)
  - Incorrect dose administered [Unknown]
  - Drug dose omission by device [Unknown]
  - Device defective [Unknown]
  - Device leakage [Unknown]
  - Device breakage [Unknown]
